FAERS Safety Report 4450467-8 (Version None)
Quarter: 2004Q3

REPORT INFORMATION
  Report Type: 
  Country: None (occurrence: None)
  Receive Date: 20040914
  Receipt Date: 20040903
  Transmission Date: 20050211
  Serious: Yes (Other)
  Sender: FDA-Public Use
  Company Number: HQWYE839807SEP04

PATIENT
  Sex: Female

DRUGS (2)
  1. LOETTE (LEVONORGESTREL/ETHINYL ESTRADIOL, TABLET) [Suspect]
     Dosage: 1 TABLET 1X PER 1 DAY ORAL
     Route: 048
  2. VALPROATE SODIUM [Concomitant]

REACTIONS (2)
  - CONDITION AGGRAVATED [None]
  - EPILEPSY [None]
